FAERS Safety Report 22602312 (Version 2)
Quarter: 2023Q2

REPORT INFORMATION
  Report Type: Report from Study
  Country: MX (occurrence: MX)
  Receive Date: 20230614
  Receipt Date: 20230623
  Transmission Date: 20230721
  Serious: Yes (Hospitalization, Other)
  Sender: FDA-Public Use
  Company Number: MX-BRISTOL-MYERS SQUIBB COMPANY-2023-075401

PATIENT
  Age: 61 Year
  Sex: Female
  Weight: 67 kg

DRUGS (1)
  1. METAMIZOLE [Concomitant]
     Active Substance: METAMIZOLE
     Indication: Migraine
     Route: 048
     Dates: start: 20230420, end: 20230524

REACTIONS (1)
  - Optic neuritis [Not Recovered/Not Resolved]

NARRATIVE: CASE EVENT DATE: 20230503
